FAERS Safety Report 4881724-9 (Version None)
Quarter: 2006Q1

REPORT INFORMATION
  Report Type: 
  Country: None (occurrence: None)
  Receive Date: 20060116
  Receipt Date: 20051222
  Transmission Date: 20060701
  Serious: Yes (Hospitalization)
  Sender: FDA-Public Use
  Company Number: US-ROCHE-429796

PATIENT
  Age: 40 Year
  Sex: Male

DRUGS (2)
  1. PEGASYS [Suspect]
     Dosage: ROUTE REPORTED AS INJECTABLE
     Route: 050
     Dates: start: 20050117
  2. COPEGUS [Suspect]
     Route: 048
     Dates: start: 20050117

REACTIONS (3)
  - ASTHMA [None]
  - MEMORY IMPAIRMENT [None]
  - PRURITUS [None]
